FAERS Safety Report 8895709 (Version 1)
Quarter: 2012Q4

REPORT INFORMATION
  Report Type: Report from Study
  Country: CA (occurrence: CA)
  Receive Date: 20121108
  Receipt Date: 20121108
  Transmission Date: 20130627
  Serious: Yes (Other)
  Sender: FDA-Public Use
  Company Number: CA-JNJFOC-20120906413

PATIENT
  Age: 34 Year
  Sex: Male
  Weight: 52.2 kg

DRUGS (8)
  1. REMICADE [Suspect]
     Indication: COLITIS ULCERATIVE
     Route: 042
     Dates: start: 20120911
  2. REMICADE [Suspect]
     Indication: COLITIS ULCERATIVE
     Route: 042
     Dates: start: 20121029
  3. REMICADE [Suspect]
     Indication: COLITIS ULCERATIVE
     Route: 042
     Dates: start: 200812
  4. REMICADE [Suspect]
     Indication: COLITIS ULCERATIVE
     Route: 042
     Dates: start: 201206
  5. REMICADE [Suspect]
     Indication: COLITIS ULCERATIVE
     Route: 042
     Dates: start: 200901
  6. CALTRATE [Concomitant]
     Route: 048
  7. IMURAN [Concomitant]
     Route: 048
  8. REACTINE [Concomitant]
     Indication: PREMEDICATION
     Route: 048

REACTIONS (5)
  - Throat tightness [Recovered/Resolved]
  - Dysphagia [Recovered/Resolved]
  - Obstructive airways disorder [Recovered/Resolved]
  - Infusion related reaction [Recovered/Resolved]
  - Discomfort [Recovered/Resolved]
